FAERS Safety Report 9828777 (Version 1)
Quarter: 2014Q1

REPORT INFORMATION
  Report Type: Spontaneous
  Country: CA (occurrence: CA)
  Receive Date: 20140117
  Receipt Date: 20140117
  Transmission Date: 20141002
  Serious: Yes (Other)
  Sender: FDA-Public Use
  Company Number: CA-AMGEN-CANSP2014002812

PATIENT
  Age: 61 Year
  Sex: Female

DRUGS (4)
  1. XGEVA [Suspect]
     Indication: BREAST CANCER
     Dosage: 120 MG, UNK
     Route: 065
     Dates: start: 20131126
  2. ZOPICLONE [Concomitant]
  3. VITAMIN D                          /00107901/ [Concomitant]
  4. CALCIUM                            /00060701/ [Concomitant]
     Dosage: 500 UNK, UNK

REACTIONS (4)
  - Intestinal obstruction [Recovered/Resolved]
  - Back pain [Not Recovered/Not Resolved]
  - Constipation [Recovered/Resolved]
  - Contusion [Unknown]
